FAERS Safety Report 17694466 (Version 1)
Quarter: 2020Q2

REPORT INFORMATION
  Report Type: Report from Study
  Country: US (occurrence: US)
  Receive Date: 20200422
  Receipt Date: 20200422
  Transmission Date: 20200714
  Serious: Yes (Hospitalization)
  Sender: FDA-Public Use
  Company Number: PHHO2014US014624

PATIENT
  Age: 71 Year
  Sex: Female
  Weight: 73.4 kg

DRUGS (17)
  1. MAXIDEX [Suspect]
     Active Substance: DEXAMETHASONE
     Indication: PLASMA CELL MYELOMA
     Dosage: 20 MG, D1,2,4,5,8,9,11,12 Q21D
     Route: 048
     Dates: start: 20140908, end: 20141205
  2. MIRTAZAPINE. [Concomitant]
     Active Substance: MIRTAZAPINE
     Indication: INSOMNIA
     Dosage: 15 MG, QHS PRN
     Route: 048
     Dates: start: 20140929
  3. DIOVAN HCT [Concomitant]
     Active Substance: HYDROCHLOROTHIAZIDE\VALSARTAN
     Indication: HYPERTENSION
     Dosage: 1 DF, QD (160-12.5 MG)
     Route: 048
     Dates: start: 20130111
  4. ACETAMINOPHEN W/HYDROCODONE [Concomitant]
     Active Substance: ACETAMINOPHEN\HYDROCODONE
     Indication: BACK PAIN
  5. TRAZODONE [Concomitant]
     Active Substance: TRAZODONE HYDROCHLORIDE
     Indication: INSOMNIA
     Dosage: 150 MG, QHS PRN
     Route: 048
     Dates: start: 20130222
  6. FARYDAK [Suspect]
     Active Substance: PANOBINOSTAT
     Dosage: 10 MG
     Route: 048
     Dates: start: 20141029, end: 20141117
  7. BORTEZOMIB. [Suspect]
     Active Substance: BORTEZOMIB
     Indication: PLASMA CELL MYELOMA
     Dosage: 1.3 MG/M2, D1,4,8,11,Q21D
     Route: 058
     Dates: start: 20140908, end: 20141205
  8. LEVOTHYROXIN [Concomitant]
     Active Substance: LEVOTHYROXINE
     Indication: HYPOTHYROIDISM
     Dosage: 12.5 UG, QD
     Route: 048
     Dates: start: 20141027
  9. POTASSIUM CHLORIDE. [Concomitant]
     Active Substance: POTASSIUM CHLORIDE
     Indication: HYPOKALAEMIA
     Dosage: 20 MEQ, QD WITH MWALS
     Route: 065
     Dates: start: 20141027
  10. LOMOTIL [Concomitant]
     Active Substance: ATROPINE SULFATE\DIPHENOXYLATE HYDROCHLORIDE
     Indication: DIARRHOEA
     Dosage: 2.5- 0.025MG, Q8H PRN
     Route: 048
     Dates: start: 20130208
  11. VELCADE [Suspect]
     Active Substance: BORTEZOMIB
     Indication: PRODUCT USED FOR UNKNOWN INDICATION
     Dosage: UNK
     Route: 065
  12. ULTRAM                             /01573601/ [Concomitant]
     Active Substance: ACETAMINOPHEN\TRAMADOL HYDROCHLORIDE
     Indication: MUSCULOSKELETAL PAIN
     Dosage: 50 MG, (Q6-8 HOURS) PRN
     Route: 048
     Dates: start: 20130122
  13. ULTRAM                             /01573601/ [Concomitant]
     Active Substance: ACETAMINOPHEN\TRAMADOL HYDROCHLORIDE
     Indication: BACK PAIN
  14. LORAZEPAM. [Concomitant]
     Active Substance: LORAZEPAM
     Indication: NAUSEA
     Dosage: 0.25 MG, Q6H PRN
     Route: 048
     Dates: start: 20141006
  15. FARYDAK [Suspect]
     Active Substance: PANOBINOSTAT
     Indication: PLASMA CELL MYELOMA
     Dosage: 15 MG, D1,3,5,8,10,12 Q21D
     Route: 048
     Dates: start: 20140908, end: 20141027
  16. ACETAMINOPHEN W/HYDROCODONE [Concomitant]
     Active Substance: ACETAMINOPHEN\HYDROCODONE
     Indication: MUSCULOSKELETAL PAIN
     Dosage: 2 DF, (5-325MG) Q4-8 HOURS PRN
     Route: 048
     Dates: start: 20121130
  17. MIRTAZAPINE. [Concomitant]
     Active Substance: MIRTAZAPINE
     Indication: DECREASED APPETITE

REACTIONS (5)
  - Urinary tract infection [Not Recovered/Not Resolved]
  - Asthenia [Not Recovered/Not Resolved]
  - Atrial fibrillation [Recovered/Resolved]
  - Vomiting [Recovered/Resolved]
  - Dizziness [Recovered/Resolved]

NARRATIVE: CASE EVENT DATE: 20140915
